FAERS Safety Report 26188935 (Version 1)
Quarter: 2025Q4

REPORT INFORMATION
  Report Type: Spontaneous
  Country: CN (occurrence: CN)
  Receive Date: 20251223
  Receipt Date: 20251223
  Transmission Date: 20260117
  Serious: Yes (Other)
  Sender: ACCORD
  Company Number: CN-Accord-519439

PATIENT
  Age: 61 Year
  Sex: Male

DRUGS (4)
  1. OXALIPLATIN [Suspect]
     Active Substance: OXALIPLATIN
     Indication: HER2 positive gastric cancer
     Dosage: (2-HOUR?INTRAVENOUS INFUSION) ON DAY 1
     Route: 042
     Dates: start: 20241031
  2. TRASTUZUMAB [Suspect]
     Active Substance: TRASTUZUMAB
     Indication: HER2 positive gastric cancer
     Dosage: 8 MG/KG, AND THE SUBSEQUENT DOSE WAS 6 MG/KG ON DAY 1 AND?THEN EVERY THREE WEEKS
     Dates: start: 20241031
  3. TS-1 [Suspect]
     Active Substance: GIMERACIL\OTERACIL POTASSIUM\TEGAFUR
     Indication: HER2 positive gastric cancer
     Dosage: TAKEN ORALLY AT A DOSE OF 120 MG/DAY ON DAYS 1-14 EVERY THREE WEEKS.
     Route: 048
     Dates: start: 20241031
  4. METFORMIN [Concomitant]
     Active Substance: METFORMIN HYDROCHLORIDE
     Indication: Type 2 diabetes mellitus

REACTIONS (3)
  - Neurotoxicity [Unknown]
  - Nausea [Unknown]
  - Therapy partial responder [Unknown]

NARRATIVE: CASE EVENT DATE: 20240101
